FAERS Safety Report 5349675-3 (Version None)
Quarter: 2007Q2

REPORT INFORMATION
  Report Type: 
  Country: None (occurrence: None)
  Receive Date: 20070607
  Receipt Date: 20070604
  Transmission Date: 20071010
  Serious: Yes (Hospitalization, Other)
  Sender: FDA-Public Use
  Company Number: HQWYE082413AUG03

PATIENT
  Sex: Female
  Weight: 81.72 kg

DRUGS (9)
  1. PREMPRO [Suspect]
     Indication: HORMONE REPLACEMENT THERAPY
     Dosage: 0.625MG/2.5MG DAILY
     Route: 048
     Dates: start: 19960101, end: 20010901
  2. ACETYLSALICYLIC ACID SRT [Concomitant]
  3. XANAX [Concomitant]
  4. PROVENTIL-HFA [Concomitant]
     Indication: ASTHMA
     Dosage: 2 PUFFS Q.I.D. AS NEEDED
     Route: 055
  5. PROVERA [Suspect]
     Indication: MENOPAUSE
     Dosage: 5MG DAILY DAYS 1-12
     Route: 048
     Dates: start: 19910101, end: 19960101
  6. PRILOSEC [Concomitant]
  7. DEMADEX [Concomitant]
     Indication: FLUID RETENTION
     Dosage: 20MG AS NEEDED FOR FLUID
     Route: 048
  8. ZOLOFT [Concomitant]
  9. PREMARIN [Suspect]
     Indication: MENOPAUSE
     Dosage: 0.625MG DAILY DAYS 1-30
     Route: 048
     Dates: start: 19910101, end: 19960101

REACTIONS (4)
  - BREAST CANCER [None]
  - CARDIAC DISORDER [None]
  - CONDITION AGGRAVATED [None]
  - LABILE HYPERTENSION [None]
